FAERS Safety Report 10274522 (Version 1)
Quarter: 2014Q3

REPORT INFORMATION
  Report Type: Spontaneous
  Country: IT (occurrence: IT)
  Receive Date: 20140702
  Receipt Date: 20140702
  Transmission Date: 20150326
  Serious: Yes (Other)
  Sender: FDA-Public Use
  Company Number: IT-ACTAVIS-2014-14228

PATIENT
  Age: 86 Year
  Sex: Female

DRUGS (1)
  1. TRAMADOL (UNKNOWN) [Suspect]
     Active Substance: TRAMADOL
     Indication: SALIVARY GLAND PAIN
     Dosage: UNK
     Route: 048
     Dates: start: 20140612, end: 20140612

REACTIONS (2)
  - Loss of consciousness [Recovering/Resolving]
  - Pallor [Recovering/Resolving]

NARRATIVE: CASE EVENT DATE: 20140612
